FAERS Safety Report 13546015 (Version 1)
Quarter: 2017Q2

REPORT INFORMATION
  Report Type: Spontaneous
  Country: US (occurrence: US)
  Receive Date: 20170515
  Receipt Date: 20170515
  Transmission Date: 20170830
  Serious: No
  Sender: FDA-Public Use
  Company Number: US-WARNER CHILCOTT-2016-002365

PATIENT

DRUGS (1)
  1. ACTONEL [Suspect]
     Active Substance: RISEDRONATE SODIUM
     Indication: OSTEOPENIA
     Dosage: UNKNOWN
     Route: 048

REACTIONS (7)
  - Pain in jaw [Unknown]
  - Gingival swelling [Unknown]
  - Abdominal distension [Unknown]
  - Headache [Unknown]
  - Gingival bleeding [Unknown]
  - Gingival pain [Unknown]
  - Rash [Unknown]
